FAERS Safety Report 5502140-2 (Version None)
Quarter: 2007Q4

REPORT INFORMATION
  Report Type: 
  Country: None (occurrence: None)
  Receive Date: 20071030
  Receipt Date: 20071022
  Transmission Date: 20080405
  Serious: Yes (Other)
  Sender: FDA-Public Use
  Company Number: US-JNJFOC-20070905589

PATIENT
  Sex: Male
  Weight: 30.16 kg

DRUGS (5)
  1. CONCERTA [Suspect]
     Indication: ATTENTION DEFICIT/HYPERACTIVITY DISORDER
     Route: 048
  2. DEPAKOTE [Concomitant]
  3. SEROQUEL [Concomitant]
  4. TENEX [Concomitant]
  5. FLONASE [Concomitant]

REACTIONS (3)
  - ARRHYTHMIA [None]
  - ELECTROCARDIOGRAM T WAVE ABNORMAL [None]
  - SUPRAVENTRICULAR EXTRASYSTOLES [None]
